FAERS Safety Report 9152456 (Version 2)
Quarter: 2013Q1

REPORT INFORMATION
  Report Type: Report from Study
  Country: NZ (occurrence: NZ)
  Receive Date: 20130308
  Receipt Date: 20130326
  Transmission Date: 20140127
  Serious: Yes (Life-Threatening, Hospitalization, Other)
  Sender: FDA-Public Use
  Company Number: NZ-ABBOTT-13P-118-1055903-00

PATIENT
  Age: 40 Year
  Sex: Female

DRUGS (39)
  1. HUMIRA [Suspect]
     Indication: CROHN^S DISEASE
     Route: 058
     Dates: start: 20091009, end: 20091009
  2. HUMIRA [Suspect]
     Dosage: WEEK 2
     Route: 058
  3. HUMIRA [Suspect]
     Route: 058
  4. HUMIRA [Suspect]
     Route: 058
     Dates: start: 20100411
  5. HUMIRA [Suspect]
     Route: 058
     Dates: start: 20100723
  6. HUMIRA [Suspect]
     Route: 058
     Dates: start: 20121102
  7. HUMIRA [Suspect]
     Route: 058
     Dates: start: 20121121
  8. PANADOL [Concomitant]
     Indication: ABDOMINAL PAIN
     Route: 048
     Dates: start: 200409
  9. CYCLIZINE [Concomitant]
     Indication: NAUSEA
     Dosage: 25 - 50 MG
     Route: 048
     Dates: start: 2003
  10. OMEPRAZOLE [Concomitant]
     Indication: PROPHYLAXIS AGAINST GASTROINTESTINAL ULCER
     Route: 048
     Dates: start: 200909
  11. OMEPRAZOLE [Concomitant]
     Route: 048
     Dates: start: 20111013
  12. CENTRUM [Concomitant]
     Indication: VITAMIN SUPPLEMENTATION
     Route: 048
     Dates: start: 200911
  13. LOPERAMIDE [Concomitant]
     Indication: SHORT-BOWEL SYNDROME
     Dosage: EVERY 4 TO 6 HRS
     Route: 048
     Dates: start: 2004
  14. LOPERAMIDE [Concomitant]
     Indication: GASTROINTESTINAL STOMA COMPLICATION
  15. OXYNORM [Concomitant]
     Indication: ABDOMINAL PAIN
     Dosage: 10 - 20 MG, 1 TO 3 TIMES/DAY
     Route: 048
     Dates: start: 200907
  16. SCOPODERM TTS [Concomitant]
     Indication: NAUSEA
     Route: 048
     Dates: start: 20091012
  17. SCOPODERM TTS [Concomitant]
     Indication: VOMITING
  18. OTHER COMBINATIONS OF NUTRIENTS [Concomitant]
     Indication: MEDICAL DIET
     Dosage: 2 TO 3 TIMES DAILY
     Route: 048
     Dates: start: 200703
  19. METHADONE [Concomitant]
     Indication: ABDOMINAL PAIN
     Dosage: TITRATED DOWN BY 5 MG EVERY WEEK
     Dates: start: 200911, end: 201001
  20. METHADONE [Concomitant]
     Indication: CROHN^S DISEASE
     Dosage: 25 MG. 20 MG, 15 MG, 10 MG; WEANED DOWN 5 MG BID WEEKLY; CURRENTLY ON 10 MG
     Dates: start: 201001, end: 20101209
  21. METHADONE [Concomitant]
     Dosage: PM DOSE
     Dates: start: 201001
  22. METHADONE [Concomitant]
     Dates: start: 20101009
  23. METHADONE [Concomitant]
     Dosage: AM DOSE
     Dates: start: 201001
  24. WARFARIN [Concomitant]
     Indication: THROMBOSIS PROPHYLAXIS
     Dosage: 1 - 5 MG
     Route: 048
     Dates: start: 200912, end: 20100615
  25. WARFARIN [Concomitant]
     Indication: ANTICOAGULANT THERAPY
     Dosage: 4 TO 5 MG DAILY
     Route: 048
     Dates: start: 20110501, end: 20111111
  26. WARFARIN [Concomitant]
     Indication: THROMBOSIS PROPHYLAXIS
     Dosage: 1 - 3 MG
     Route: 048
     Dates: start: 20111112
  27. CHOLECALCIFEROL [Concomitant]
     Indication: VITAMIN D DEFICIENCY
     Dates: start: 200911
  28. CHOLECALCIFEROL [Concomitant]
     Indication: PROPHYLAXIS
  29. FLUOXETINE [Concomitant]
     Indication: DEPRESSION
     Dates: start: 20090912
  30. FLUOXETINE [Concomitant]
     Indication: ANXIETY
  31. ORAL REHYDRATION SALT FORMULATIONS [Concomitant]
     Indication: PROPHYLAXIS AGAINST DEHYDRATION
     Dates: start: 20100310
  32. ZOPICLONE [Concomitant]
     Indication: SEDATIVE THERAPY
     Route: 048
     Dates: start: 20110907
  33. LORAZEPAM [Concomitant]
     Indication: SEDATIVE THERAPY
     Route: 048
     Dates: start: 20110907
  34. LORAZEPAM [Concomitant]
     Indication: ANXIOLYTIC THERAPY
  35. PHYTOMENADIONE [Concomitant]
     Indication: HAEMORRHAGE PROPHYLAXIS
     Dates: start: 20120203
  36. DOXAZOSIN [Concomitant]
     Indication: URETHRAL SPASM
     Dates: start: 20111012
  37. DOXAZOSIN [Concomitant]
     Indication: PROPHYLAXIS
  38. ONDANSETRON [Concomitant]
     Indication: NAUSEA
     Dosage: EVERY 8 HOURS
     Route: 048
     Dates: start: 20100615
  39. ONDANSETRON [Concomitant]
     Indication: VOMITING

REACTIONS (3)
  - Suicide attempt [Recovered/Resolved]
  - Overdose [Recovered/Resolved]
  - Crohn^s disease [Recovered/Resolved]
